FAERS Safety Report 7969469-X (Version None)
Quarter: 2011Q4

REPORT INFORMATION
  Report Type: 
  Country: None (occurrence: None)
  Receive Date: 20111212
  Receipt Date: 20111205
  Transmission Date: 20120403
  Serious: Yes (Hospitalization)
  Sender: FDA-Public Use
  Company Number: US-BIOGENIDEC-2010BI038209

PATIENT
  Age: 58 Year
  Sex: Female

DRUGS (1)
  1. AVONEX [Suspect]
     Indication: MULTIPLE SCLEROSIS
     Route: 030
     Dates: start: 20100311

REACTIONS (5)
  - PROCEDURAL PAIN [None]
  - HYPERTHYROIDISM [None]
  - DEVICE FAILURE [None]
  - SPINAL DEFORMITY [None]
  - BACK PAIN [None]
